FAERS Safety Report 23523817 (Version 2)
Quarter: 2024Q1

REPORT INFORMATION
  Report Type: Spontaneous
  Country: AT (occurrence: AT)
  Receive Date: 20240214
  Receipt Date: 20240306
  Transmission Date: 20240410
  Serious: Yes (Other)
  Sender: FDA-Public Use
  Company Number: AT-002147023-NVSC2024AT026234

PATIENT
  Sex: Female
  Weight: 72 kg

DRUGS (3)
  1. CYCLOSPORINE [Suspect]
     Active Substance: CYCLOSPORINE
     Indication: Product used for unknown indication
     Dosage: 3 MG/KG/D (IN 2 SINGLE DOSES FROM DAY -1, THEN ADAPTED TO BLOOD LEVEL) (INITIALLY INTRAVENOUS, AFTER
     Route: 065
     Dates: start: 20231122, end: 20240219
  2. MYCOPHENOLATE MOFETIL [Concomitant]
     Active Substance: MYCOPHENOLATE MOFETIL
     Indication: Product used for unknown indication
     Dosage: 15 MG/KG, BID (FROM DAY +1 TO DAY +47)
     Route: 065
  3. CORTISONE ACETATE [Concomitant]
     Active Substance: CORTISONE ACETATE
     Indication: Product used for unknown indication
     Dosage: UNK
     Route: 065

REACTIONS (14)
  - Thrombotic microangiopathy [Recovered/Resolved]
  - Febrile neutropenia [Unknown]
  - Acute graft versus host disease in skin [Unknown]
  - Cystitis haemorrhagic [Unknown]
  - Thrombocytopenia [Not Recovered/Not Resolved]
  - Stomatitis [Unknown]
  - Skin toxicity [Unknown]
  - Hypertension [Unknown]
  - Liver disorder [Unknown]
  - Nephropathy [Unknown]
  - Cholelithiasis [Unknown]
  - BK virus infection [Unknown]
  - Disease recurrence [Unknown]
  - Gastrointestinal inflammation [Unknown]

NARRATIVE: CASE EVENT DATE: 20240201
